FAERS Safety Report 18157649 (Version 2)
Quarter: 2020Q3

REPORT INFORMATION
  Report Type: Spontaneous
  Country: US (occurrence: US)
  Receive Date: 20200817
  Receipt Date: 20200828
  Transmission Date: 20201103
  Serious: No
  Sender: FDA-Public Use
  Company Number: US-BAYER-2020-167492

PATIENT
  Sex: Male

DRUGS (2)
  1. ALEVE [Suspect]
     Active Substance: NAPROXEN SODIUM
     Indication: GOUT
     Dosage: UNK
     Route: 065
  2. CLOFENAC [DICLOFENAC SODIUM] [Concomitant]
     Dosage: UNK

REACTIONS (7)
  - Peripheral swelling [Recovering/Resolving]
  - Arthralgia [Not Recovered/Not Resolved]
  - Urine abnormality [Unknown]
  - Product use in unapproved indication [Unknown]
  - Joint stiffness [Not Recovered/Not Resolved]
  - Chromaturia [Unknown]
  - Diarrhoea [Unknown]
